FAERS Safety Report 9904011 (Version 2)
Quarter: 2014Q2

REPORT INFORMATION
  Report Type: Spontaneous
  Country: FR (occurrence: FR)
  Receive Date: 20140218
  Receipt Date: 20140609
  Transmission Date: 20141212
  Serious: Yes (Disabling)
  Sender: FDA-Public Use
  Company Number: FR-ROCHE-1351081

PATIENT
  Sex: Female
  Weight: 60 kg

DRUGS (3)
  1. LUCENTIS [Suspect]
     Indication: AGE-RELATED MACULAR DEGENERATION
     Route: 050
     Dates: start: 20131114
  2. LUCENTIS [Suspect]
     Route: 050
     Dates: start: 20131216, end: 20131216
  3. LUCENTIS [Suspect]
     Route: 050
     Dates: start: 20140127, end: 20140127

REACTIONS (1)
  - Sudden hearing loss [Not Recovered/Not Resolved]
